FAERS Safety Report 26115288 (Version 2)
Quarter: 2025Q4

REPORT INFORMATION
  Report Type: Report from Study
  Country: GB (occurrence: GB)
  Receive Date: 20251203
  Receipt Date: 20251209
  Transmission Date: 20260117
  Serious: Yes (Other)
  Sender: SAMSUNG BIOEPIS
  Company Number: GB-SAMSUNG BIOEPIS-SB-2025-39712

PATIENT
  Sex: Male

DRUGS (2)
  1. PYZCHIVA [Suspect]
     Active Substance: USTEKINUMAB-TTWE
     Indication: Crohn^s disease
     Route: 058
     Dates: start: 20250708
  2. PYZCHIVA [Suspect]
     Active Substance: USTEKINUMAB-TTWE
     Route: 058
     Dates: start: 20250907

REACTIONS (2)
  - Crohn^s disease [Unknown]
  - Product use issue [Unknown]
